FAERS Safety Report 17720017 (Version 12)
Quarter: 2020Q4

REPORT INFORMATION
  Report Type: Spontaneous
  Country: US (occurrence: US)
  Receive Date: 20200428
  Receipt Date: 20201215
  Transmission Date: 20210113
  Serious: No
  Sender: FDA-Public Use
  Company Number: US-PFIZER INC-2020165914

PATIENT
  Age: 43 Year
  Sex: Female
  Weight: 59.87 kg

DRUGS (5)
  1. XELJANZ [Interacting]
     Active Substance: TOFACITINIB CITRATE
     Indication: AUTOIMMUNE DISORDER
  2. XELJANZ [Interacting]
     Active Substance: TOFACITINIB CITRATE
     Indication: ALOPECIA AREATA
  3. XELJANZ [Suspect]
     Active Substance: TOFACITINIB CITRATE
     Indication: ALOPECIA
     Dosage: 5 MG, 2X/DAY (5 MG, TWICE DAILY)
     Route: 048
     Dates: start: 20200424, end: 2020
  4. XELJANZ [Interacting]
     Active Substance: TOFACITINIB CITRATE
     Indication: ALOPECIA UNIVERSALIS
     Dosage: 5 MG, 2X/DAY (5 MG, TWICE DAILY)
     Route: 048
     Dates: start: 2020
  5. ASPIRIN [ACETYLSALICYLIC ACID;ASCORBIC ACID] [Concomitant]
     Active Substance: ACETAMINOPHEN\ASCORBIC ACID
     Dosage: 180 MG, UNK

REACTIONS (4)
  - Drug effective for unapproved indication [Unknown]
  - Labelled drug-food interaction medication error [Unknown]
  - Off label use [Unknown]
  - Pain [Unknown]

NARRATIVE: CASE EVENT DATE: 2020
